FAERS Safety Report 9692397 (Version 2)
Quarter: 2013Q4

REPORT INFORMATION
  Report Type: Spontaneous
  Country: US (occurrence: US)
  Receive Date: 20131118
  Receipt Date: 20131230
  Transmission Date: 20140711
  Serious: No
  Sender: FDA-Public Use
  Company Number: US-PFIZER INC-2013325036

PATIENT
  Age: 78 Year
  Sex: Male

DRUGS (1)
  1. SUTENT [Suspect]
     Indication: THYROID CANCER
     Dosage: 25 MG, DAILY (ONCE DAILY)
     Dates: start: 20131022

REACTIONS (5)
  - Off label use [Unknown]
  - Headache [Unknown]
  - Candida infection [Unknown]
  - Mucosal inflammation [Unknown]
  - Oral pain [Unknown]
